FAERS Safety Report 8651296 (Version 3)
Quarter: 2012Q4

REPORT INFORMATION
  Report Type: 
  Country: US (occurrence: US)
  Receive Date: 20120705
  Receipt Date: 20120917
  Transmission Date: 20130627
  Serious: Yes (Other)
  Sender: FDA-Public Use
  Company Number: US-ABBOTT-12P-163-0951067-00

PATIENT
  Sex: Female
  Weight: 91.71 kg

DRUGS (1)
  1. HUMIRA [Suspect]
     Route: 058

REACTIONS (2)
  - Tooth disorder [Unknown]
  - Tooth abscess [Unknown]
